FAERS Safety Report 8014382-5 (Version None)
Quarter: 2011Q4

REPORT INFORMATION
  Report Type: 
  Country: None (occurrence: None)
  Receive Date: 20111229
  Receipt Date: 20111227
  Transmission Date: 20120403
  Serious: Yes (Hospitalization)
  Sender: FDA-Public Use
  Company Number: PHEH2011US012641

PATIENT
  Sex: Female
  Weight: 51.247 kg

DRUGS (7)
  1. GILENYA [Suspect]
     Dosage: 0.5 MG, DAILY
     Route: 048
  2. SINGULAIR [Concomitant]
     Dosage: 10 MG, UNK
  3. ADVAIR DISKUS 100/50 [Concomitant]
     Dosage: UNK UKN, UNK
  4. GABAPENTIN [Concomitant]
     Dosage: 100 MG, UNK
  5. VITAMIN D [Concomitant]
     Dosage: 400 U, UNK
  6. XYZAL [Concomitant]
     Dosage: 5 MG, UNK
  7. RITALIN [Concomitant]
     Dosage: 5 MG, UNK

REACTIONS (4)
  - MUSCULAR WEAKNESS [None]
  - DYSKINESIA [None]
  - DISTURBANCE IN ATTENTION [None]
  - HYPOAESTHESIA [None]
